FAERS Safety Report 7150013-4 (Version None)
Quarter: 2010Q4

REPORT INFORMATION
  Report Type: 
  Country: None (occurrence: None)
  Receive Date: 20101210
  Receipt Date: 20101201
  Transmission Date: 20110411
  Serious: Yes (Other)
  Sender: FDA-Public Use
  Company Number: US-CELGENEUS-163-21880-10120287

PATIENT
  Sex: Male

DRUGS (12)
  1. REVLIMID [Suspect]
     Indication: MULTIPLE MYELOMA
     Route: 048
     Dates: start: 20090101
  2. REVLIMID [Suspect]
     Route: 048
     Dates: start: 20100127
  3. REVLIMID [Suspect]
     Route: 048
     Dates: start: 20100607
  4. VELCADE [Concomitant]
     Indication: MULTIPLE MYELOMA
     Route: 065
     Dates: start: 20090101
  5. VELCADE [Concomitant]
     Route: 065
     Dates: start: 20100405
  6. VELCADE [Concomitant]
     Route: 065
     Dates: start: 20100607
  7. DEXAMETHASONE [Concomitant]
     Indication: MULTIPLE MYELOMA
     Route: 065
     Dates: start: 20090101
  8. DEXAMETHASONE [Concomitant]
     Route: 065
     Dates: start: 20100127
  9. DEXAMETHASONE [Concomitant]
     Route: 065
     Dates: start: 20100607
  10. CYCLOPHOSPHAMIDE [Concomitant]
     Indication: MULTIPLE MYELOMA
     Route: 065
     Dates: start: 20100607
  11. ETOPOSIDE [Concomitant]
     Indication: MULTIPLE MYELOMA
     Route: 065
     Dates: start: 20100607
  12. CISPLATIN [Concomitant]
     Indication: MULTIPLE MYELOMA
     Route: 065
     Dates: start: 20100607

REACTIONS (1)
  - MALIGNANT MELANOMA [None]
